FAERS Safety Report 9552294 (Version 1)
Quarter: 2013Q3

REPORT INFORMATION
  Report Type: Spontaneous
  Country: US (occurrence: US)
  Receive Date: 20130925
  Receipt Date: 20130925
  Transmission Date: 20140515
  Serious: No
  Sender: FDA-Public Use
  Company Number: US-009507513-1309USA001336

PATIENT
  Age: 74 Year
  Sex: Male

DRUGS (4)
  1. ZOCOR [Suspect]
     Indication: MYOCARDIAL INFARCTION
     Dosage: 40 MG, HS
     Route: 048
     Dates: start: 2003, end: 201110
  2. LISINOPRIL [Concomitant]
     Indication: BLOOD PRESSURE
     Dosage: 10 MG, QD
  3. ATENOLOL [Concomitant]
     Indication: BLOOD PRESSURE
     Dosage: 25 MG, QD
  4. ASPIRIN [Concomitant]
     Dosage: 100 MG, QD

REACTIONS (1)
  - Muscle spasms [Recovered/Resolved]
